FAERS Safety Report 16759039 (Version 1)
Quarter: 2019Q4

REPORT INFORMATION
  Report Type: Spontaneous
  Country: US (occurrence: US)
  Receive Date: 20190829
  Receipt Date: 20190829
  Transmission Date: 20200122
  Serious: Yes (Death)
  Sender: FDA-Public Use
  Company Number: None

PATIENT
  Sex: Male

DRUGS (1)
  1. PALIPERIDONE ER 6MG [Suspect]
     Active Substance: PALIPERIDONE

REACTIONS (1)
  - Death [None]
